FAERS Safety Report 10378096 (Version 1)
Quarter: 2014Q3

REPORT INFORMATION
  Report Type: Spontaneous
  Country: US (occurrence: US)
  Receive Date: 20140812
  Receipt Date: 20140812
  Transmission Date: 20150326
  Serious: Yes (Life-Threatening, Hospitalization, Other)
  Sender: FDA-Public Use
  Company Number: US-009507513-1408USA001124

PATIENT
  Sex: Female
  Weight: 63.49 kg

DRUGS (2)
  1. NUVARING [Suspect]
     Active Substance: ETHINYL ESTRADIOL\ETONOGESTREL
     Indication: MENORRHAGIA
     Dosage: UNK
     Route: 067
     Dates: start: 20111107, end: 201305
  2. NUVARING [Suspect]
     Active Substance: ETHINYL ESTRADIOL\ETONOGESTREL
     Indication: ENDOMETRIOSIS

REACTIONS (28)
  - Menometrorrhagia [Recovering/Resolving]
  - Urinary tract infection [Unknown]
  - Pleurisy [Not Recovered/Not Resolved]
  - Gingival bleeding [Unknown]
  - Pulmonary embolism [Recovering/Resolving]
  - Bronchitis [Unknown]
  - Anxiety [Unknown]
  - Fall [Unknown]
  - Back pain [Unknown]
  - Bartholin^s cyst [Unknown]
  - Dilatation intrahepatic duct acquired [Unknown]
  - Hypertension [Unknown]
  - Spinal fusion surgery [Unknown]
  - Weight fluctuation [Unknown]
  - Arthritis [Unknown]
  - Cystitis [Unknown]
  - Haemorrhagic anaemia [Unknown]
  - Intervertebral disc protrusion [Unknown]
  - Gastrooesophageal reflux disease [Unknown]
  - Menstruation irregular [Unknown]
  - Anaemia [Unknown]
  - Uterine dilation and curettage [Unknown]
  - Joint injury [Recovering/Resolving]
  - Headache [Unknown]
  - Surgery [Unknown]
  - Iron deficiency anaemia [Unknown]
  - Drug ineffective [Unknown]
  - Off label use [Unknown]

NARRATIVE: CASE EVENT DATE: 20111107
